FAERS Safety Report 11638638 (Version 2)
Quarter: 2017Q1

REPORT INFORMATION
  Report Type: Report from Study
  Country: None (occurrence: US)
  Receive Date: 20151016
  Receipt Date: 20170130
  Transmission Date: 20170428
  Serious: Yes (Death)
  Sender: FDA-Public Use
  Company Number: US-ABBVIE-15K-163-1481803-00

PATIENT
  Age: 87 Year
  Sex: Male

DRUGS (1)
  1. HUMIRA [Suspect]
     Active Substance: ADALIMUMAB
     Indication: RHEUMATOID ARTHRITIS
     Route: 058

REACTIONS (7)
  - Asthenia [Fatal]
  - Lung neoplasm malignant [Fatal]
  - Fall [Unknown]
  - Malaise [Unknown]
  - Hepatic cancer [Fatal]
  - Insomnia [Fatal]
  - Musculoskeletal chest pain [Fatal]

NARRATIVE: CASE EVENT DATE: 201502
